FAERS Safety Report 8445878-X (Version None)
Quarter: 2012Q2

REPORT INFORMATION
  Report Type: 
  Country: None (occurrence: None)
  Receive Date: 20120618
  Receipt Date: 20120604
  Transmission Date: 20120825
  Serious: Yes (Other)
  Sender: FDA-Public Use
  Company Number: PHHY2012JP046727

PATIENT
  Age: 33 Year
  Sex: Female

DRUGS (4)
  1. PREDNISOLONE [Concomitant]
     Indication: SYSTEMIC LUPUS ERYTHEMATOSUS
     Dosage: 7.5 MG, UNK
  2. PREDNISOLONE [Concomitant]
     Dosage: 20 MG, UNK
  3. NEORAL [Suspect]
     Indication: SYSTEMIC LUPUS ERYTHEMATOSUS
     Route: 048
  4. STEROIDS NOS [Concomitant]

REACTIONS (7)
  - PYREXIA [None]
  - MATERNAL EXPOSURE DURING PREGNANCY [None]
  - RASH [None]
  - SYSTEMIC LUPUS ERYTHEMATOSUS [None]
  - PREMATURE RUPTURE OF MEMBRANES [None]
  - DRUG ERUPTION [None]
  - BLOOD PRESSURE INCREASED [None]
